FAERS Safety Report 4694885-1 (Version None)
Quarter: 2005Q2

REPORT INFORMATION
  Report Type: 
  Country: None (occurrence: None)
  Receive Date: 20050617
  Receipt Date: 20050607
  Transmission Date: 20051028
  Serious: Yes (Hospitalization, Disabling, Other)
  Sender: FDA-Public Use
  Company Number: 2005078912

PATIENT
  Sex: Female

DRUGS (3)
  1. CELEBREX [Suspect]
     Indication: OSTEOARTHRITIS
     Dosage: 200 MG (100 MG, 2 IN 1 D), ORAL
     Route: 048
  2. ARICEPT [Suspect]
     Indication: VASCULAR DEMENTIA
     Dosage: 10 MG, ORAL
     Route: 048
     Dates: start: 20040901
  3. MEMANTINE (MEMANTINE) [Suspect]
     Indication: VASCULAR DEMENTIA

REACTIONS (5)
  - ABNORMAL DREAMS [None]
  - FEMUR FRACTURE [None]
  - HALLUCINATION [None]
  - HYPERSOMNIA [None]
  - WALKING AID USER [None]
